FAERS Safety Report 6521837-9 (Version None)
Quarter: 2009Q4

REPORT INFORMATION
  Report Type: 
  Country: None (occurrence: None)
  Receive Date: 20091214
  Receipt Date: 20090723
  Transmission Date: 20100525
  Serious: Yes (Other)
  Sender: FDA-Public Use
  Company Number: 646340

PATIENT
  Age: 34 Year
  Sex: Female

DRUGS (2)
  1. PEGASYS [Suspect]
     Indication: HEPATITIS C
     Dosage: 180 UG 1 PER WEEK INTRAMUSCULAR
     Route: 030
     Dates: start: 20090202, end: 20090715
  2. RIBAVIRIN [Suspect]
     Indication: HEPATITIS C
     Dosage: 400 MG 2 PER DAY ORAL
     Route: 048
     Dates: start: 20090202, end: 20090715

REACTIONS (3)
  - ABSCESS [None]
  - CELLULITIS [None]
  - INJECTION SITE REACTION [None]
